FAERS Safety Report 7459018-7 (Version None)
Quarter: 2011Q2

REPORT INFORMATION
  Report Type: 
  Country: None (occurrence: None)
  Receive Date: 20110505
  Receipt Date: 20110425
  Transmission Date: 20111010
  Serious: Yes (Life-Threatening)
  Sender: FDA-Public Use
  Company Number: BE-BIOGENIDEC-2011BI016217

PATIENT
  Age: 28 Year
  Sex: Female

DRUGS (2)
  1. ZYRTEC [Concomitant]
     Indication: ALLERGY PROPHYLAXIS
     Route: 048
     Dates: start: 20110327, end: 20110401
  2. TYSABRI [Suspect]
     Indication: MULTIPLE SCLEROSIS
     Route: 042
     Dates: start: 20110401, end: 20110401

REACTIONS (1)
  - ANGIOEDEMA [None]
